FAERS Safety Report 7940078-1 (Version None)
Quarter: 2011Q4

REPORT INFORMATION
  Report Type: 
  Country: None (occurrence: None)
  Receive Date: 20111125
  Receipt Date: 20111116
  Transmission Date: 20120403
  Serious: Yes (Hospitalization)
  Sender: FDA-Public Use
  Company Number: PHEH2011US009532

PATIENT
  Sex: Female

DRUGS (2)
  1. DIOVAN HCT [Suspect]
     Dosage: 1 DF(80/12.5 MG) QD
     Dates: start: 20040101
  2. MULTI-VITAMIN [Concomitant]
     Dosage: UNK UKN, UNK

REACTIONS (4)
  - BLOOD POTASSIUM DECREASED [None]
  - PALPITATIONS [None]
  - LOSS OF CONSCIOUSNESS [None]
  - DYSPNOEA [None]
